FAERS Safety Report 4459937-X (Version None)
Quarter: 2004Q3

REPORT INFORMATION
  Report Type: 
  Country: None (occurrence: None)
  Receive Date: 20040928
  Receipt Date: 20030910
  Transmission Date: 20050211
  Serious: No
  Sender: FDA-Public Use
  Company Number: US-GLAXOSMITHKLINE-A0425345A

PATIENT

DRUGS (3)
  1. SEREVENT [Suspect]
     Indication: BRONCHOSPASM
     Dosage: 50MCG TWICE PER DAY
     Route: 055
     Dates: start: 20020301, end: 20020701
  2. THEOPHYLLINE [Concomitant]
  3. KENALOG [Concomitant]

REACTIONS (1)
  - EAR INFECTION [None]
